FAERS Safety Report 10233900 (Version 1)
Quarter: 2014Q2

REPORT INFORMATION
  Report Type: Spontaneous
  Country: CO (occurrence: CO)
  Receive Date: 20140612
  Receipt Date: 20140612
  Transmission Date: 20141212
  Serious: Yes (Other)
  Sender: FDA-Public Use
  Company Number: CO-BAYER-2014-083369

PATIENT
  Sex: Female

DRUGS (2)
  1. GYNOCANESTEN COMPRIMIDOS VAGINALES 100 MG [Suspect]
     Indication: CANDIDA INFECTION
     Dosage: UNK
     Route: 067
  2. GYNO CANESTEN CREMA 1% [Suspect]
     Indication: CANDIDA INFECTION
     Dosage: UNK
     Route: 003

REACTIONS (4)
  - Haemorrhage [None]
  - Swelling [None]
  - Discomfort [None]
  - Maternal exposure during pregnancy [None]
